FAERS Safety Report 9278684 (Version 1)
Quarter: 2013Q2

REPORT INFORMATION
  Report Type: Spontaneous
  Country: US (occurrence: US)
  Receive Date: 20130508
  Receipt Date: 20130508
  Transmission Date: 20140414
  Serious: No
  Sender: FDA-Public Use
  Company Number: US-PFIZER INC-2010006904

PATIENT
  Age: 72 Year
  Sex: Female
  Weight: 47.2 kg

DRUGS (3)
  1. XALATAN [Suspect]
     Indication: GLAUCOMA
     Dosage: 0.005 %, 1X/DAY
     Route: 047
  2. COSOPT [Concomitant]
     Dosage: UNK
  3. BRIMONIDINE TARTRATE [Concomitant]
     Dosage: UNK

REACTIONS (5)
  - Eye irritation [Unknown]
  - Eye pruritus [Unknown]
  - Reaction to preservatives [Unknown]
  - Intraocular pressure fluctuation [Unknown]
  - Product quality issue [Unknown]
